FAERS Safety Report 9684633 (Version 1)
Quarter: 2013Q4

REPORT INFORMATION
  Report Type: Spontaneous
  Country: GB (occurrence: GB)
  Receive Date: 20131112
  Receipt Date: 20131112
  Transmission Date: 20140711
  Serious: Yes (Other)
  Sender: FDA-Public Use
  Company Number: GB-B.I. PHARMACEUTICALS,INC./RIDGEFIELD-2013-BI-36336UK

PATIENT
  Age: 90 Year
  Sex: Female
  Weight: 49 kg

DRUGS (14)
  1. PRADAXA [Suspect]
     Indication: ATRIAL FIBRILLATION
     Dosage: 220 MG
     Route: 048
     Dates: start: 20120424, end: 20131010
  2. ADCAL-D3 [Concomitant]
  3. ATORVASTATIN [Concomitant]
  4. BISOPROLOL [Concomitant]
  5. DOCUSATE [Concomitant]
  6. FERROUS SULFATE DRIED [Concomitant]
  7. FEXOFENADINE [Concomitant]
  8. FUROSEMIDE [Concomitant]
  9. LANSOPRAZOLE [Concomitant]
  10. LEVOMEPROMAZINE [Concomitant]
  11. MORPHINE [Concomitant]
  12. PARACETAMOL [Concomitant]
  13. PERINDOPRIL [Concomitant]
  14. SENNA [Concomitant]

REACTIONS (5)
  - Anaemia [Not Recovered/Not Resolved]
  - Decreased appetite [Recovered/Resolved]
  - Nausea [Recovered/Resolved]
  - Weight decreased [Recovered/Resolved]
  - Renal function test abnormal [Unknown]
